FAERS Safety Report 25180464 (Version 2)
Quarter: 2025Q2

REPORT INFORMATION
  Report Type: Spontaneous
  Country: US (occurrence: US)
  Receive Date: 20250409
  Receipt Date: 20250512
  Transmission Date: 20250716
  Serious: No
  Sender: PFIZER
  Company Number: US-PFIZER INC-202500073256

PATIENT
  Age: 11 Year
  Sex: Female

DRUGS (1)
  1. SOMATROPIN [Suspect]
     Active Substance: SOMATROPIN
     Dosage: 1.4 MG, DAILY
     Route: 058
     Dates: start: 20250228

REACTIONS (4)
  - Injection site pain [Unknown]
  - Injection site mass [Unknown]
  - Needle issue [Unknown]
  - Product colour issue [Unknown]
